FAERS Safety Report 13079313 (Version 3)
Quarter: 2017Q2

REPORT INFORMATION
  Report Type: Report from Study
  Country: None (occurrence: US)
  Receive Date: 20170103
  Receipt Date: 20170405
  Transmission Date: 20170830
  Serious: Yes (Hospitalization, Other)
  Sender: FDA-Public Use
  Company Number: US-ABBVIE-16K-163-1825860-00

PATIENT
  Age: 49 Year
  Sex: Female

DRUGS (1)
  1. HUMIRA [Suspect]
     Active Substance: ADALIMUMAB
     Indication: PSORIASIS
     Route: 058
     Dates: start: 2015, end: 20161010

REACTIONS (9)
  - Vision blurred [Recovered/Resolved]
  - Gastric bypass [Unknown]
  - Dehydration [Not Recovered/Not Resolved]
  - Procedural vomiting [Unknown]
  - Gastric ulcer [Unknown]
  - Inguinal hernia [Recovered/Resolved]
  - Gastric operation [Unknown]
  - Post procedural complication [Not Recovered/Not Resolved]
  - Hypophagia [Not Recovered/Not Resolved]

NARRATIVE: CASE EVENT DATE: 2016
